FAERS Safety Report 9004974 (Version 2)
Quarter: 2013Q2

REPORT INFORMATION
  Report Type: Spontaneous
  Country: US (occurrence: None)
  Receive Date: 20120508
  Receipt Date: 20121107
  Transmission Date: 20140414
  Serious: No
  Sender: FDA-Public Use
  Company Number: 2012HGS-003098

PATIENT
  Age: 56 Year
  Sex: Female
  Weight: 57.61 kg

DRUGS (5)
  1. BENLYSTA [Suspect]
     Indication: SYSTEMIC LUPUS ERYTHEMATOSUS
     Dosage: 1 IN 2 WK
     Route: 041
     Dates: start: 20111206
  2. METHOREXATE [Concomitant]
  3. LEUCOVORIN [Concomitant]
  4. MELOXICAM [Concomitant]
  5. PREDNISONE [Concomitant]

REACTIONS (4)
  - Rash erythematous [None]
  - Rash macular [None]
  - Rash pruritic [None]
  - Rash generalised [None]
